FAERS Safety Report 4646799-0 (Version None)
Quarter: 2005Q2

REPORT INFORMATION
  Report Type: 
  Country: None (occurrence: None)
  Receive Date: 20050331
  Receipt Date: 20041202
  Transmission Date: 20051028
  Serious: No
  Sender: FDA-Public Use
  Company Number: 04P-163-0282026-00

PATIENT
  Sex: Female
  Weight: 53.0709 kg

DRUGS (8)
  1. HUMIRA [Suspect]
     Indication: RHEUMATOID ARTHRITIS
     Dosage: 40 MG, 1 IN 2 WK, SUBCUTANEOUS;  40 MG, 1 IN 2 WK, SUBCUTANEOUS
     Route: 058
     Dates: start: 20040701, end: 20040901
  2. HUMIRA [Suspect]
     Indication: RHEUMATOID ARTHRITIS
     Dosage: 40 MG, 1 IN 2 WK, SUBCUTANEOUS;  40 MG, 1 IN 2 WK, SUBCUTANEOUS
     Route: 058
     Dates: start: 20040901
  3. BACITRACIN [Concomitant]
  4. METHOTREXATE SODIUM [Concomitant]
  5. TRAZADONE [Concomitant]
  6. RABEPRAZOLE SODIUM [Concomitant]
  7. CALCIUM GLUCONATE [Concomitant]
  8. VITAMINS [Concomitant]

REACTIONS (4)
  - OPEN WOUND [None]
  - PURULENT DISCHARGE [None]
  - SINUSITIS [None]
  - THERMAL BURN [None]
